FAERS Safety Report 5272516-X (Version None)
Quarter: 2007Q1

REPORT INFORMATION
  Report Type: 
  Country: None (occurrence: None)
  Receive Date: 20070322
  Receipt Date: 20060822
  Transmission Date: 20070707
  Serious: No
  Sender: FDA-Public Use
  Company Number: US-BRISTOL-MYERS SQUIBB COMPANY-13485453

PATIENT
  Age: 53 Year
  Sex: Female
  Weight: 81 kg

DRUGS (4)
  1. KENALOG [Suspect]
     Indication: ANALGESIC EFFECT
     Dates: start: 20060815, end: 20060815
  2. SINGULAIR [Concomitant]
  3. ALUPENT [Concomitant]
  4. ADVAIR DISKUS 100/50 [Concomitant]

REACTIONS (1)
  - PSYCHOTIC DISORDER [None]
